FAERS Safety Report 5567224-1 (Version None)
Quarter: 2007Q4

REPORT INFORMATION
  Report Type: 
  Country: None (occurrence: None)
  Receive Date: 20071219
  Receipt Date: 20071214
  Transmission Date: 20080405
  Serious: Yes (Hospitalization)
  Sender: FDA-Public Use
  Company Number: FR-ABBOTT-04P-056-0259628-00

PATIENT
  Age: 65 Year
  Sex: Female

DRUGS (5)
  1. NAXY TABLETS [Suspect]
     Indication: HELICOBACTER INFECTION
     Route: 048
     Dates: start: 20031207, end: 20031214
  2. CARBAMAZEPINE [Interacting]
     Indication: EPILEPSY
     Route: 048
     Dates: end: 20031201
  3. OMEPRAZOLE [Interacting]
     Indication: HELICOBACTER INFECTION
     Route: 048
     Dates: end: 20031214
  4. METRONIDAZOLE HCL [Interacting]
     Indication: HELICOBACTER INFECTION
     Route: 048
     Dates: start: 20031207, end: 20031214
  5. TOPIRAMATE [Concomitant]
     Indication: EPILEPSY
     Route: 048

REACTIONS (13)
  - ABASIA [None]
  - BALANCE DISORDER [None]
  - CEREBELLAR SYNDROME [None]
  - COMPUTERISED TOMOGRAM ABNORMAL [None]
  - COORDINATION ABNORMAL [None]
  - DRUG INTERACTION [None]
  - DRUG LEVEL INCREASED [None]
  - DYSARTHRIA [None]
  - EYE DISORDER [None]
  - FALL [None]
  - HYPONATRAEMIA [None]
  - IIIRD NERVE PARESIS [None]
  - NYSTAGMUS [None]
